FAERS Safety Report 15538086 (Version 2)
Quarter: 2018Q4

REPORT INFORMATION
  Report Type: Spontaneous
  Country: US (occurrence: US)
  Receive Date: 20181022
  Receipt Date: 20181112
  Transmission Date: 20190205
  Serious: Yes (Other)
  Sender: FDA-Public Use
  Company Number: US-PFIZER INC-2018427845

PATIENT
  Age: 83 Year
  Sex: Female
  Weight: 46 kg

DRUGS (3)
  1. LYRICA [Suspect]
     Active Substance: PREGABALIN
     Indication: LUMBAR SPINAL STENOSIS
     Dosage: 75 MG, 3X/DAY (THREE A DAY)
     Route: 048
  2. NORCO [Concomitant]
     Active Substance: ACETAMINOPHEN\HYDROCODONE BITARTRATE
     Dosage: UNK UNK, DAILY
  3. NORCO [Concomitant]
     Active Substance: ACETAMINOPHEN\HYDROCODONE BITARTRATE
     Dosage: 2 DF, DAILY

REACTIONS (5)
  - Disturbance in attention [Unknown]
  - Product dose omission [Unknown]
  - Drug dependence [Unknown]
  - Malaise [Unknown]
  - Feeling abnormal [Unknown]
